FAERS Safety Report 17979967 (Version 1)
Quarter: 2020Q3

REPORT INFORMATION
  Report Type: Spontaneous
  Country: RO (occurrence: RO)
  Receive Date: 20200703
  Receipt Date: 20200703
  Transmission Date: 20201103
  Serious: Yes (Other)
  Sender: FDA-Public Use
  Company Number: RO-ASTRAZENECA-2020SE83118

PATIENT
  Sex: Male

DRUGS (4)
  1. BRILIQUE [Suspect]
     Active Substance: TICAGRELOR
     Indication: ACUTE MYOCARDIAL INFARCTION
     Route: 048
  2. ASA [Concomitant]
     Active Substance: ASPIRIN
  3. BRILIQUE [Suspect]
     Active Substance: TICAGRELOR
     Indication: ACUTE MYOCARDIAL INFARCTION
     Dosage: 180MG LOADING DOSE
     Route: 048
  4. ASA [Concomitant]
     Active Substance: ASPIRIN
     Dosage: 250MG LOADING DOSE

REACTIONS (10)
  - Upper gastrointestinal haemorrhage [Recovered/Resolved]
  - Hepatocellular injury [Recovering/Resolving]
  - Pyrexia [Unknown]
  - Inflammation [Unknown]
  - Anaemia [Recovering/Resolving]
  - Syncope [Unknown]
  - Gout [Unknown]
  - Craniocerebral injury [Unknown]
  - Acute kidney injury [Recovering/Resolving]
  - Duodenal ulcer [Recovering/Resolving]
